FAERS Safety Report 22594647 (Version 1)
Quarter: 2023Q2

REPORT INFORMATION
  Report Type: Spontaneous
  Country: JP (occurrence: JP)
  Receive Date: 20230613
  Receipt Date: 20230613
  Transmission Date: 20230721
  Serious: Yes (Hospitalization, Other)
  Sender: FDA-Public Use
  Company Number: JP-BRISTOL-MYERS SQUIBB COMPANY-2023-066671

PATIENT
  Sex: Male

DRUGS (5)
  1. SYMPROIC [Suspect]
     Active Substance: NALDEMEDINE
     Indication: Constipation
     Dosage: UNK UNK, UNKNOWN
     Route: 065
  2. YERVOY [Suspect]
     Active Substance: IPILIMUMAB
     Indication: Non-small cell lung cancer
     Dosage: 53 MG, ONCE EVERY 6 WEEKS
     Route: 065
  3. OPDIVO [Suspect]
     Active Substance: NIVOLUMAB
     Indication: Non-small cell lung cancer
     Dosage: 240 MG, ONCE EVERY 2 WEEKS
     Route: 065
  4. ANAMORELIN HYDROCHLORIDE [Suspect]
     Active Substance: ANAMORELIN HYDROCHLORIDE
     Indication: Weight decreased
     Dosage: UNK UNK, UNKNOWN
     Route: 065
  5. MAGNESIUM OXIDE [Concomitant]
     Active Substance: MAGNESIUM OXIDE
     Indication: Constipation
     Dosage: UNK UNK, UNKNOWN
     Route: 065

REACTIONS (3)
  - Renal impairment [Unknown]
  - Immune-mediated enterocolitis [Unknown]
  - Weight decreased [Unknown]
